FAERS Safety Report 10909858 (Version 1)
Quarter: 2015Q1

REPORT INFORMATION
  Report Type: Spontaneous
  Country: US (occurrence: US)
  Receive Date: 20150312
  Receipt Date: 20150312
  Transmission Date: 20150721
  Serious: No
  Sender: FDA-Public Use
  Company Number: US-SA-2015SA021601

PATIENT
  Age: 36 Year
  Sex: Female

DRUGS (2)
  1. NASACORT ALLERGY 24HR [Suspect]
     Active Substance: TRIAMCINOLONE ACETONIDE
     Indication: FOOD ALLERGY
     Route: 065
  2. NASACORT ALLERGY 24HR [Suspect]
     Active Substance: TRIAMCINOLONE ACETONIDE
     Indication: FOOD ALLERGY
     Dosage: DAILY DOSE: 2 SPRAY EACH NOSTRIL
     Route: 065
     Dates: start: 20150216

REACTIONS (2)
  - Drug ineffective [Unknown]
  - Drug administration error [Unknown]
